FAERS Safety Report 5220187-0 (Version None)
Quarter: 2007Q1

REPORT INFORMATION
  Report Type: 
  Country: None (occurrence: None)
  Receive Date: 20061201
  Receipt Date: 20061025
  Transmission Date: 20070707
  Serious: Yes (Other)
  Sender: FDA-Public Use
  Company Number: PHEH2005US09169

PATIENT
  Age: 53 Year
  Sex: Female

DRUGS (4)
  1. LAMISIL [Suspect]
     Indication: NAIL TINEA
     Dosage: 250 MG QD ORAL
     Route: 048
     Dates: start: 20050505, end: 20050702
  2. SYNTHROID [Concomitant]
  3. ALPRAZOLAM [Concomitant]
  4. QUESTRAN LIGHT (COLESTYRAMINE) [Concomitant]

REACTIONS (3)
  - HYPERSENSITIVITY [None]
  - PRURITUS [None]
  - RASH ERYTHEMATOUS [None]
